FAERS Safety Report 16045930 (Version 1)
Quarter: 2019Q1

REPORT INFORMATION
  Report Type: Spontaneous
  Country: US (occurrence: US)
  Receive Date: 20190307
  Receipt Date: 20190307
  Transmission Date: 20190418
  Serious: No
  Sender: FDA-Public Use
  Company Number: US-CELGENEUS-USA-20190209139

PATIENT
  Sex: Female
  Weight: 146.06 kg

DRUGS (14)
  1. GABAPENTINE [Concomitant]
     Active Substance: GABAPENTIN
     Indication: NEURALGIA
  2. TIZANIDINE. [Concomitant]
     Active Substance: TIZANIDINE
     Indication: RESTLESS LEGS SYNDROME
  3. XELJANZ [Concomitant]
     Active Substance: TOFACITINIB CITRATE
     Indication: PSORIATIC ARTHROPATHY
     Dosage: 5 MILLIGRAM
     Route: 048
  4. OTEZLA [Suspect]
     Active Substance: APREMILAST
     Indication: SYSTEMIC LUPUS ERYTHEMATOSUS
     Route: 048
  5. HYDROXYCHLOR [Concomitant]
     Active Substance: HYDROXYCHLOROQUINE
     Indication: SYSTEMIC LUPUS ERYTHEMATOSUS
     Dosage: 400 MILLIGRAM
     Route: 048
  6. HYDROCOD/ACT [Concomitant]
     Indication: PAIN
     Dosage: 5-325 MG
     Route: 048
  7. OTEZLA [Suspect]
     Active Substance: APREMILAST
     Indication: OFF LABEL USE
  8. LEFLUNOMIDE. [Concomitant]
     Active Substance: LEFLUNOMIDE
     Indication: PSORIATIC ARTHROPATHY
     Dosage: 20 MILLIGRAM
     Route: 048
  9. TIZANIDINE. [Concomitant]
     Active Substance: TIZANIDINE
     Indication: BACK PAIN
  10. TIZANIDINE. [Concomitant]
     Active Substance: TIZANIDINE
     Indication: NECK PAIN
     Dosage: 4 MILLIGRAM
     Route: 048
  11. OTEZLA [Suspect]
     Active Substance: APREMILAST
     Indication: FIBROMYALGIA
  12. DULOXETINE. [Concomitant]
     Active Substance: DULOXETINE
     Indication: FIBROMYALGIA
     Dosage: 60 MILLIGRAM
     Route: 048
  13. GABAPENTINE [Concomitant]
     Active Substance: GABAPENTIN
     Indication: PRODUCT USED FOR UNKNOWN INDICATION
     Dosage: 900 MILLIGRAM
     Route: 048
  14. LEVOTHYROXINE. [Concomitant]
     Active Substance: LEVOTHYROXINE
     Indication: HYPOTHYROIDISM
     Dosage: 112 MICROGRAM
     Route: 048

REACTIONS (3)
  - Blood glucose increased [Unknown]
  - Feeling abnormal [Unknown]
  - Drug ineffective [Unknown]
